FAERS Safety Report 9342501 (Version 1)
Quarter: 2013Q2

REPORT INFORMATION
  Report Type: Spontaneous
  Country: JP (occurrence: JP)
  Receive Date: 20130611
  Receipt Date: 20130611
  Transmission Date: 20140414
  Serious: Yes (Other)
  Sender: FDA-Public Use
  Company Number: JP-PFIZER INC-2013171491

PATIENT
  Age: 33 Year
  Sex: Female

DRUGS (4)
  1. LYRICA [Suspect]
     Indication: COMPLEX REGIONAL PAIN SYNDROME
     Dosage: 75 MG, AS NEEDED
     Route: 048
     Dates: start: 201203, end: 20130605
  2. LYRICA [Suspect]
     Dosage: 600 MG, 1X/DAY (AT THE HIGHEST)
  3. CYMBALTA [Suspect]
     Dosage: 60 MG, 1X/DAY
     Route: 048
     Dates: start: 201205, end: 20130605
  4. ULTRACET [Suspect]
     Dosage: 8 DF, 1X/DAY (8 TABLETS DAILY)
     Route: 048
     Dates: start: 201205, end: 20130605

REACTIONS (2)
  - Serotonin syndrome [Recovered/Resolved]
  - Off label use [Unknown]
